FAERS Safety Report 17631687 (Version 2)
Quarter: 2020Q2

REPORT INFORMATION
  Report Type: Spontaneous
  Country: US (occurrence: US)
  Receive Date: 20200406
  Receipt Date: 20200416
  Transmission Date: 20200713
  Serious: No
  Sender: FDA-Public Use
  Company Number: US-AMGEN-USASP2020053844

PATIENT
  Age: 77 Year
  Sex: Male
  Weight: 98.41 kg

DRUGS (3)
  1. ELIQUIS [Suspect]
     Active Substance: APIXABAN
     Indication: ATRIAL FIBRILLATION
     Dosage: 5 MILLIGRAM, BID
     Route: 065
  2. REPATHA [Suspect]
     Active Substance: EVOLOCUMAB
     Indication: ARTERIOSCLEROSIS
     Dosage: 140 MILLIGRAM, Q2WK
     Route: 058
     Dates: start: 20191205
  3. ASA [Concomitant]
     Active Substance: ASPIRIN
     Indication: PROPHYLAXIS
     Dosage: 81 MILLIGRAM, QD
     Route: 065

REACTIONS (5)
  - Intentional product misuse [Recovered/Resolved]
  - Injection site bruising [Recovered/Resolved]
  - Accidental exposure to product [Unknown]
  - Injection site erythema [Unknown]
  - Device defective [Unknown]

NARRATIVE: CASE EVENT DATE: 20200326
